FAERS Safety Report 12579692 (Version 1)
Quarter: 2016Q3

REPORT INFORMATION
  Report Type: Spontaneous
  Country: GB (occurrence: GB)
  Receive Date: 20160721
  Receipt Date: 20160721
  Transmission Date: 20161109
  Serious: Yes (Life-Threatening)
  Sender: FDA-Public Use
  Company Number: GB-TEVA-676895ACC

PATIENT
  Age: 36 Year
  Sex: Female

DRUGS (4)
  1. CLOMIPRAMINE [Suspect]
     Active Substance: CLOMIPRAMINE
     Indication: DEPRESSION
     Dosage: 250 MILLIGRAM DAILY; AT NIGHT04-MAY-16 100MG 24-MAY-16 200MG15-JUN-16 250MG
     Route: 048
     Dates: start: 20160615, end: 20160623
  2. CLOMIPRAMINE [Suspect]
     Active Substance: CLOMIPRAMINE
     Indication: DEPRESSION
     Dosage: 50 MILLIGRAM DAILY; AT NIGHT04-MAY-16 100MG 24-MAY-16 200MG15-JUN-16 250MG
     Route: 048
     Dates: start: 20160420, end: 20160503
  3. CLOMIPRAMINE [Suspect]
     Active Substance: CLOMIPRAMINE
     Indication: DEPRESSION
     Dosage: 100 MILLIGRAM DAILY; AT NIGHT04-MAY-16 100MG 24-MAY-16 200MG15-JUN-16 250MG
     Route: 048
     Dates: start: 20160504, end: 20160523
  4. CLOMIPRAMINE [Suspect]
     Active Substance: CLOMIPRAMINE
     Indication: DEPRESSION
     Dosage: 200 MILLIGRAM DAILY; AT NIGHT04-MAY-16 100MG 24-MAY-16 200MG15-JUN-16 250MG
     Route: 048
     Dates: start: 20160524, end: 20160614

REACTIONS (1)
  - Neutropenic sepsis [Recovering/Resolving]

NARRATIVE: CASE EVENT DATE: 20160420
